FAERS Safety Report 7152638-9 (Version None)
Quarter: 2010Q4

REPORT INFORMATION
  Report Type: 
  Country: None (occurrence: None)
  Receive Date: 20101208
  Receipt Date: 20101208
  Transmission Date: 20110411
  Serious: No
  Sender: FDA-Public Use
  Company Number: None

PATIENT
  Sex: Male

DRUGS (1)
  1. TRAZODONE HCL [Suspect]
     Dosage: 25MG HS PRN PO
     Route: 048

REACTIONS (3)
  - AGGRESSION [None]
  - AGITATION [None]
  - ANGER [None]
